FAERS Safety Report 8258083-7 (Version None)
Quarter: 2012Q2

REPORT INFORMATION
  Report Type: 
  Country: None (occurrence: None)
  Receive Date: 20120404
  Receipt Date: 20120327
  Transmission Date: 20120825
  Serious: Yes (Hospitalization)
  Sender: FDA-Public Use
  Company Number: JP-VERTEX PHARMACEUTICALS INC.-AE-2012-004557

PATIENT
  Age: 65 Year
  Sex: Female

DRUGS (13)
  1. TELAVIC (TELAPREVIR) [Suspect]
     Dates: start: 20120221, end: 20120307
  2. PRIMPERAN TAB [Concomitant]
  3. PEGINTERFERON [Concomitant]
     Route: 051
     Dates: start: 20120223, end: 20120301
  4. RIBAVIRIN [Concomitant]
     Indication: HEPATITIS C
     Route: 048
     Dates: start: 20120126, end: 20120209
  5. PEGINTERFERON [Concomitant]
     Indication: HEPATITIS C
     Route: 051
     Dates: start: 20120126, end: 20120209
  6. VALSARTAN  AND HYDROCHLOROTHIAZIDE [Concomitant]
  7. TELAVIC (TELAPREVIR) [Suspect]
     Indication: HEPATITIS C
     Route: 048
     Dates: start: 20120126, end: 20120214
  8. FAMOTIDINE [Concomitant]
  9. LOXOPROFEN [Concomitant]
  10. NIFEDIPINE [Concomitant]
  11. RIBAVIRIN [Concomitant]
     Dates: start: 20120209, end: 20120307
  12. DIOVAN [Concomitant]
  13. REBAMIPIDE [Concomitant]

REACTIONS (3)
  - DIZZINESS [None]
  - DEAFNESS [None]
  - DECREASED APPETITE [None]
